FAERS Safety Report 9705751 (Version 2)
Quarter: 2015Q3

REPORT INFORMATION
  Report Type: Spontaneous
  Country: US (occurrence: US)
  Receive Date: 20131122
  Receipt Date: 20150803
  Transmission Date: 20151125
  Serious: No
  Sender: FDA-Public Use
  Company Number: US-GILEAD-2008-0017950

PATIENT
  Age: 53 Year
  Sex: Female
  Weight: 86.18 kg

DRUGS (19)
  1. LETAIRIS [Suspect]
     Active Substance: AMBRISENTAN
     Indication: PULMONARY ARTERIAL HYPERTENSION
     Route: 048
  2. MOTRIN [Concomitant]
     Active Substance: IBUPROFEN
     Dosage: AS DIRECTED
     Route: 048
  3. CARDI-OMEGA 3 [Concomitant]
     Dosage: AS DIRECTED
     Route: 048
  4. ROBITUSSIN-DAC SYRUP [Concomitant]
     Dosage: AS DIRECTED
     Route: 048
  5. PREDNISONE. [Concomitant]
     Active Substance: PREDNISONE
     Dosage: AS DIRECTED
     Route: 048
  6. OMEPRAZOLE. [Concomitant]
     Active Substance: OMEPRAZOLE
     Dosage: AS DIRECTED
     Route: 048
  7. PROZAC [Concomitant]
     Active Substance: FLUOXETINE HYDROCHLORIDE
     Dosage: AS DIRECTED
     Route: 048
  8. SPIRIVA [Concomitant]
     Active Substance: TIOTROPIUM BROMIDE MONOHYDRATE
     Dosage: AS DIRECTED
     Route: 048
  9. LOPERAMIDE [Concomitant]
     Active Substance: LOPERAMIDE
     Dosage: AS DIRECTED
     Route: 048
  10. CALCIUM + D [Concomitant]
     Active Substance: CALCIUM\VITAMIN D
     Dosage: AS DIRECTED
     Route: 048
  11. ALBUTEROL NEBULIZER [Concomitant]
     Active Substance: ALBUTEROL
     Dosage: AS DIRECTED
     Route: 048
  12. IMURAN [Concomitant]
     Active Substance: AZATHIOPRINE
     Dosage: AS DIRECTED
     Route: 048
  13. VALTREX [Concomitant]
     Active Substance: VALACYCLOVIR HYDROCHLORIDE
     Dosage: AS DIRECTED
     Route: 048
  14. DITROPAN [Concomitant]
     Active Substance: OXYBUTYNIN CHLORIDE
     Dosage: AS DIRECTED
     Route: 048
  15. PLAQUENIL [Concomitant]
     Active Substance: HYDROXYCHLOROQUINE SULFATE
     Dosage: AS DIRECTED
     Route: 048
  16. MULTIVITAMIN [Concomitant]
     Active Substance: VITAMINS
     Dosage: AS DIRECTED
     Route: 048
  17. FOSAMAX [Concomitant]
     Active Substance: ALENDRONATE SODIUM
     Dosage: AS DIRECTED
     Route: 048
  18. ALLEGRA [Concomitant]
     Active Substance: FEXOFENADINE HYDROCHLORIDE
     Dosage: AS DIRECTED
     Route: 048
  19. PROAIR HFA [Concomitant]
     Active Substance: ALBUTEROL SULFATE
     Dosage: AS DIRECTED
     Route: 048

REACTIONS (3)
  - Nausea [None]
  - Headache [None]
  - Dizziness [None]
